FAERS Safety Report 4291478-5 (Version None)
Quarter: 2004Q1

REPORT INFORMATION
  Report Type: 
  Country: None (occurrence: None)
  Receive Date: 20040126
  Receipt Date: 20030915
  Transmission Date: 20041129
  Serious: No
  Sender: FDA-Public Use
  Company Number: USA030947207

PATIENT
  Age: 83 Year
  Sex: Female

DRUGS (8)
  1. FORTEO [Suspect]
     Dates: start: 20030901, end: 20030901
  2. DITROPAN [Concomitant]
  3. MEDROL [Concomitant]
  4. IMDUR [Concomitant]
  5. THEOLAIR (THEOPHYLILNE) [Concomitant]
  6. ASPIRIN [Concomitant]
  7. ESTRACE [Concomitant]
  8. PROGESTIN INJ [Concomitant]

REACTIONS (3)
  - DIFFICULTY IN WALKING [None]
  - MUSCLE CRAMP [None]
  - URINE OUTPUT DECREASED [None]
